FAERS Safety Report 8428542-2 (Version None)
Quarter: 2012Q2

REPORT INFORMATION
  Report Type: 
  Country: None (occurrence: None)
  Receive Date: 20120606
  Receipt Date: 20120606
  Transmission Date: 20120825
  Serious: Yes (Hospitalization, Other)
  Sender: FDA-Public Use
  Company Number: None

PATIENT
  Age: 84 Year
  Sex: Male
  Weight: 67.1324 kg

DRUGS (1)
  1. RECLAST [Suspect]
     Indication: OSTEOPENIA
     Dosage: ONCE, IV
     Route: 042
     Dates: start: 20120506, end: 20120605

REACTIONS (4)
  - TREMOR [None]
  - MUSCULAR WEAKNESS [None]
  - FALL [None]
  - CONFUSIONAL STATE [None]
